FAERS Safety Report 6194187-0 (Version None)
Quarter: 2009Q2

REPORT INFORMATION
  Report Type: 
  Country: None (occurrence: None)
  Receive Date: 20090518
  Receipt Date: 20090512
  Transmission Date: 20091009
  Serious: Yes (Disabling, Other)
  Sender: FDA-Public Use
  Company Number: US-ALLERGAN-0906581US

PATIENT
  Age: 68 Year
  Sex: Female

DRUGS (4)
  1. BOTOX [Suspect]
     Indication: SKIN WRINKLING
     Dosage: 49 UNITS, SINGLE
     Route: 030
     Dates: start: 20090323, end: 20090323
  2. BOTOX [Suspect]
     Dosage: UNK, UNK
     Route: 030
     Dates: start: 20080101
  3. PREMARIN [Concomitant]
  4. VITAMINS [Concomitant]

REACTIONS (8)
  - CEREBROVASCULAR ACCIDENT [None]
  - CHEST PAIN [None]
  - EYELID PTOSIS [None]
  - HEADACHE [None]
  - HYPOAESTHESIA [None]
  - MUSCULAR WEAKNESS [None]
  - PAIN IN EXTREMITY [None]
  - VISION BLURRED [None]
